FAERS Safety Report 22239843 (Version 1)
Quarter: 2023Q2

REPORT INFORMATION
  Report Type: Spontaneous
  Country: US (occurrence: US)
  Receive Date: 20230421
  Receipt Date: 20230421
  Transmission Date: 20230722
  Serious: No
  Sender: FDA-Public Use
  Company Number: US-SA-SAC20230420001171

PATIENT
  Age: 34 Year
  Sex: Male

DRUGS (1)
  1. DUPIXENT [Suspect]
     Active Substance: DUPILUMAB
     Indication: Dermatitis atopic
     Dosage: 300 MG; FREQUENCY: OTHER.
     Route: 058
     Dates: start: 201906

REACTIONS (2)
  - Skin irritation [Unknown]
  - Erythema [Unknown]

NARRATIVE: CASE EVENT DATE: 20230404
